FAERS Safety Report 17107671 (Version 2)
Quarter: 2019Q4

REPORT INFORMATION
  Report Type: Report from Study
  Country: US (occurrence: US)
  Receive Date: 20191203
  Receipt Date: 20191206
  Transmission Date: 20200122
  Serious: Yes (Hospitalization)
  Sender: FDA-Public Use
  Company Number: NVSC2019US054970

PATIENT
  Age: 1 Year
  Sex: Male
  Weight: 8.5 kg

DRUGS (2)
  1. COSENTYX [Suspect]
     Active Substance: SECUKINUMAB
     Indication: DERMATITIS ALLERGIC
     Dosage: 75 MG
     Route: 058
     Dates: start: 20190819
  2. COSENTYX [Suspect]
     Active Substance: SECUKINUMAB
     Dosage: 75 MG
     Route: 058
     Dates: start: 20191118

REACTIONS (3)
  - Respiratory arrest [Recovering/Resolving]
  - Herpes virus infection [Not Recovered/Not Resolved]
  - Bronchial secretion retention [Not Recovered/Not Resolved]

NARRATIVE: CASE EVENT DATE: 20191120
